FAERS Safety Report 10200315 (Version 1)
Quarter: 2014Q2

REPORT INFORMATION
  Report Type: Spontaneous
  Country: US (occurrence: US)
  Receive Date: 20140527
  Receipt Date: 20140527
  Transmission Date: 20141212
  Serious: Yes (Other)
  Sender: FDA-Public Use
  Company Number: PHEH2014US010239

PATIENT
  Sex: Male

DRUGS (3)
  1. EXELON PATCH [Suspect]
     Dosage: UNK UKN, UNK
     Route: 062
  2. NAMENDA [Concomitant]
     Dosage: UNK UKN, UNK
  3. DIOVAN HCT [Concomitant]
     Dosage: UNK UKN, UNK

REACTIONS (3)
  - Dementia [Not Recovered/Not Resolved]
  - Dizziness [Unknown]
  - Drug tolerance [Unknown]
